FAERS Safety Report 9036223 (Version 1)
Quarter: 2013Q1

REPORT INFORMATION
  Report Type: Spontaneous
  Country: US (occurrence: None)
  Receive Date: 20130117
  Receipt Date: 20130117
  Transmission Date: 20140127
  Serious: No
  Sender: FDA-Public Use
  Company Number: None

PATIENT
  Age: 68 Year
  Sex: Male

DRUGS (7)
  1. AUGMENTIN [Suspect]
     Dates: start: 20110320, end: 20110402
  2. AZITHROMYCIN [Suspect]
     Dates: start: 20110408, end: 20110412
  3. ZOCOR [Concomitant]
  4. METFORMIN [Concomitant]
  5. ASA [Concomitant]
  6. IBUPROFEN [Concomitant]
  7. PRINIVIL [Concomitant]

REACTIONS (13)
  - Drug-induced liver injury [None]
  - Abdominal pain upper [None]
  - Nausea [None]
  - Pyrexia [None]
  - Chills [None]
  - Decreased appetite [None]
  - Chromaturia [None]
  - Aspartate aminotransferase increased [None]
  - Alanine aminotransferase increased [None]
  - Blood bilirubin increased [None]
  - Blood alkaline phosphatase increased [None]
  - Hepatic steatosis [None]
  - Cholelithiasis [None]
